FAERS Safety Report 19476359 (Version 1)
Quarter: 2021Q2

REPORT INFORMATION
  Report Type: Report from Study
  Country: CO (occurrence: CO)
  Receive Date: 20210630
  Receipt Date: 20210630
  Transmission Date: 20210717
  Serious: Yes (Other)
  Sender: FDA-Public Use
  Company Number: CO-ASTRAZENECA-2021A564650

PATIENT
  Age: 22475 Day
  Sex: Female
  Weight: 68 kg

DRUGS (1)
  1. LYNPARZA [Suspect]
     Active Substance: OLAPARIB
     Indication: OVARIAN CANCER
     Route: 048
     Dates: start: 20200919, end: 20210605

REACTIONS (1)
  - Carbohydrate antigen 125 increased [Recovering/Resolving]

NARRATIVE: CASE EVENT DATE: 20210605
